FAERS Safety Report 8977085 (Version 1)
Quarter: 2012Q4

REPORT INFORMATION
  Report Type: Report from Study
  Country: US (occurrence: US)
  Receive Date: 20121220
  Receipt Date: 20121220
  Transmission Date: 20130627
  Serious: Yes (Other)
  Sender: FDA-Public Use
  Company Number: US-CELGENEUS-163-21880-12083085

PATIENT
  Age: 36 Year
  Sex: Male
  Weight: 100 kg

DRUGS (4)
  1. REVLIMID [Suspect]
     Indication: ACUTE MYELOID LEUKEMIA
     Dosage: 5 Milligram
     Route: 048
     Dates: start: 20111031
  2. REVLIMID [Suspect]
     Dosage: 5 Milligram
     Route: 048
     Dates: start: 20111128, end: 20111205
  3. TACROLIMUS [Concomitant]
     Indication: DRUG USE FOR UNKNOWN INDICATION
     Dosage: decreased
     Route: 065
     Dates: end: 20111128
  4. TACROLIMUS [Concomitant]
     Dosage: increased
     Route: 065
     Dates: start: 20111206

REACTIONS (1)
  - Graft versus host disease [Unknown]
